FAERS Safety Report 21892193 (Version 1)
Quarter: 2023Q1

REPORT INFORMATION
  Report Type: Spontaneous
  Country: US (occurrence: US)
  Receive Date: 20230120
  Receipt Date: 20230120
  Transmission Date: 20230418
  Serious: No
  Sender: FDA-Public Use
  Company Number: US-JAZZ-2022-US-034377

PATIENT
  Sex: Female

DRUGS (2)
  1. XYREM [Suspect]
     Active Substance: SODIUM OXYBATE
     Indication: Narcolepsy
     Dosage: 3 GRAM, BID, DILUTED IN 60 ML OF WATER
     Dates: start: 2017
  2. XYREM [Suspect]
     Active Substance: SODIUM OXYBATE
     Indication: Cataplexy

REACTIONS (4)
  - Tachycardia [Recovered/Resolved]
  - Chest discomfort [Recovered/Resolved]
  - Dyspnoea [Recovered/Resolved]
  - COVID-19 [Recovered/Resolved]

NARRATIVE: CASE EVENT DATE: 20220710
